FAERS Safety Report 7818071-9 (Version None)
Quarter: 2011Q4

REPORT INFORMATION
  Report Type: 
  Country: None (occurrence: None)
  Receive Date: 20111017
  Receipt Date: 20111012
  Transmission Date: 20120403
  Serious: Yes (Other)
  Sender: FDA-Public Use
  Company Number: AR-SANOFI-AVENTIS-2011SA040960

PATIENT
  Age: 79 Year
  Sex: Male
  Weight: 99 kg

DRUGS (8)
  1. PERINDOPRIL ERBUMINE [Concomitant]
  2. FUROSEMIDE [Concomitant]
  3. WARFARIN SODIUM [Concomitant]
     Dosage: 3.5MG WEEKLY
  4. DRONEDARONE HCL [Suspect]
     Indication: ATRIAL FIBRILLATION
     Route: 048
     Dates: start: 20110427, end: 20110627
  5. DIURETICS [Concomitant]
  6. ASPIRIN [Concomitant]
  7. ATORVASTATIN [Concomitant]
  8. CARVEDILOL [Concomitant]

REACTIONS (1)
  - BLOOD CREATININE INCREASED [None]
